FAERS Safety Report 5327440-0 (Version None)
Quarter: 2007Q2

REPORT INFORMATION
  Report Type: 
  Country: None (occurrence: None)
  Receive Date: 20070514
  Receipt Date: 20070514
  Transmission Date: 20071010
  Serious: Yes (Hospitalization)
  Sender: FDA-Public Use
  Company Number: None

PATIENT
  Sex: Female
  Weight: 78.2 kg

DRUGS (6)
  1. METHOTREXATE [Suspect]
     Indication: BONE SARCOMA
     Dosage: 20 GRAMS OVER 4 HRS X1 IV
     Route: 042
     Dates: start: 20061208
  2. METHOTREXATE [Suspect]
  3. METHOTREXATE [Suspect]
     Indication: BONE SARCOMA
     Dosage: 20 GRAMS OVER 4 HRS X1 IV
     Route: 042
     Dates: start: 20061215
  4. METHOTREXATE [Suspect]
  5. METHOTREXATE [Suspect]
  6. MTX [Concomitant]

REACTIONS (5)
  - EPISTAXIS [None]
  - GRAND MAL CONVULSION [None]
  - LETHARGY [None]
  - MOUTH HAEMORRHAGE [None]
  - POSTICTAL STATE [None]
